FAERS Safety Report 18303214 (Version 1)
Quarter: 2020Q3

REPORT INFORMATION
  Report Type: Other
  Country: CA (occurrence: CA)
  Receive Date: 20200923
  Receipt Date: 20200923
  Transmission Date: 20201103
  Serious: Yes (Other)
  Sender: FDA-Public Use
  Company Number: CA-APOTEX-2020AP018085

PATIENT
  Age: 61 Year
  Sex: Female

DRUGS (6)
  1. BUDESONIDE;FORMOTEROL FUMARATE [Suspect]
     Active Substance: BUDESONIDE\FORMOTEROL FUMARATE
     Indication: PRODUCT USED FOR UNKNOWN INDICATION
     Dosage: UNK
  2. CALCIUM CHLORIDE. [Suspect]
     Active Substance: CALCIUM CHLORIDE
     Indication: PRODUCT USED FOR UNKNOWN INDICATION
     Dosage: 1000.0 MILLIGRAM, QD
     Route: 065
  3. PREDNISONE. [Suspect]
     Active Substance: PREDNISONE
     Indication: PRODUCT USED FOR UNKNOWN INDICATION
     Dosage: 10.0 MILLIGRAM, QD
     Route: 065
  4. AMLODIPINE [Suspect]
     Active Substance: AMLODIPINE BESYLATE
     Indication: HYPERTENSION
     Dosage: 10.0 MILLIGRAM, QD
     Route: 065
  5. VITAMIN D3 [Suspect]
     Active Substance: CHOLECALCIFEROL
     Indication: PRODUCT USED FOR UNKNOWN INDICATION
     Dosage: 1000.0 INTERNATIONAL UNIT, QD
     Route: 065
  6. IRBESARTAN. [Suspect]
     Active Substance: IRBESARTAN
     Indication: PRODUCT USED FOR UNKNOWN INDICATION
     Dosage: 300.0 MILLIGRAM, QD
     Route: 065

REACTIONS (12)
  - Asthma [Unknown]
  - Rales [Unknown]
  - Dyspnoea [Unknown]
  - Bronchopulmonary aspergillosis allergic [Unknown]
  - Aspergillus infection [Unknown]
  - Pulmonary function test decreased [Unknown]
  - Blood immunoglobulin E increased [Unknown]
  - Tachypnoea [Unknown]
  - Wheezing [Unknown]
  - Cough [Unknown]
  - Bronchiectasis [Unknown]
  - Eosinophilia [Unknown]
